FAERS Safety Report 7210872-3 (Version None)
Quarter: 2010Q4

REPORT INFORMATION
  Report Type: 
  Country: None (occurrence: None)
  Receive Date: 20101223
  Receipt Date: 20101209
  Transmission Date: 20110411
  Serious: Yes (Other)
  Sender: FDA-Public Use
  Company Number: DSJ-2010-18560

PATIENT
  Age: 39 Year
  Sex: Female

DRUGS (2)
  1. OLMETEC (OLMESARTAN MEDOXOMIL) (TABLET) (OLMESARTAN MEDOXOMIL) [Suspect]
     Indication: HYPERTENSION
     Dosage: 20 MG (20 MG, 1 IN 1 D), PER ORAL
     Route: 048
     Dates: start: 20100921, end: 20101012
  2. . [Concomitant]

REACTIONS (7)
  - CAESAREAN SECTION [None]
  - CONTRAINDICATION TO MEDICAL TREATMENT [None]
  - DRUG EXPOSURE DURING PREGNANCY [None]
  - DRUG LEVEL INCREASED [None]
  - HAEMORRHAGE [None]
  - OLIGOHYDRAMNIOS [None]
  - PREMATURE LABOUR [None]
